FAERS Safety Report 23825894 (Version 2)
Quarter: 2024Q2

REPORT INFORMATION
  Report Type: Spontaneous
  Country: US (occurrence: US)
  Receive Date: 20240507
  Receipt Date: 20240509
  Transmission Date: 20240715
  Serious: Yes (Other)
  Sender: FDA-Public Use
  Company Number: US-TEVA-VS-3184738

PATIENT
  Age: 71 Year
  Sex: Female

DRUGS (7)
  1. FAMOTIDINE [Suspect]
     Active Substance: FAMOTIDINE
     Indication: Oesophagitis
     Dosage: FOR YEARS
     Route: 065
     Dates: start: 2020
  2. FAMOTIDINE [Suspect]
     Active Substance: FAMOTIDINE
     Indication: Oesophagitis
     Route: 065
  3. FAMOTIDINE [Suspect]
     Active Substance: FAMOTIDINE
     Indication: Oesophagitis
     Dosage: TWO TABLETS
     Route: 065
     Dates: start: 202403
  4. SUCRALFATE [Suspect]
     Active Substance: SUCRALFATE
     Indication: Product used for unknown indication
     Route: 065
     Dates: start: 2024
  5. PANTOPRAZOLE [Suspect]
     Active Substance: PANTOPRAZOLE
     Indication: Product used for unknown indication
     Dosage: TEVA^S PANTOPRAZOLE, [STARTED APPROXIMATELY 2010 OR 2011, STOPPED APPROXIMATELY 2015 OR 2016]
     Route: 065
  6. OMEPRAZOLE [Suspect]
     Active Substance: DONEPEZIL HYDROCHLORIDE\OMEPRAZOLE\OMEPRAZOLE MAGNESIUM
     Indication: Product used for unknown indication
     Dosage: PURPLE AND WHITE CAPSULE WITH SIDE 1 ^Z ALLEN DASH 11^ AND SIDE 2 ^40 MG^
     Route: 065
     Dates: start: 20240301, end: 20240315
  7. PANTOPRAZOLE [Suspect]
     Active Substance: PANTOPRAZOLE
     Route: 065

REACTIONS (15)
  - Osteitis [Unknown]
  - Adverse event [Unknown]
  - Osteoporosis [Not Recovered/Not Resolved]
  - Rash macular [Recovered/Resolved]
  - Eczema [Recovered/Resolved]
  - Polyp [Not Recovered/Not Resolved]
  - Pruritus [Recovered/Resolved]
  - Flushing [Recovered/Resolved]
  - Serum sickness [Recovered/Resolved]
  - Skin fissures [Recovered/Resolved]
  - Oesophagitis [Not Recovered/Not Resolved]
  - Gastrooesophageal reflux disease [Not Recovered/Not Resolved]
  - Hyperhidrosis [Recovered/Resolved]
  - Abdominal distension [Recovered/Resolved]
  - Drug effect less than expected [Not Recovered/Not Resolved]

NARRATIVE: CASE EVENT DATE: 20240301
